FAERS Safety Report 13038375 (Version 1)
Quarter: 2016Q4

REPORT INFORMATION
  Report Type: Other
  Country: IN (occurrence: IN)
  Receive Date: 20161219
  Receipt Date: 20161219
  Transmission Date: 20170207
  Serious: Yes (Other)
  Sender: FDA-Public Use
  Company Number: IN-DEXPHARM-20162400

PATIENT
  Age: 61 Year
  Sex: Male

DRUGS (1)
  1. DICLOFENAC SODIUM INTRAVITREAL [Suspect]
     Active Substance: DICLOFENAC SODIUM
     Indication: DIABETIC RETINAL OEDEMA

REACTIONS (1)
  - Retinal toxicity [Recovered/Resolved with Sequelae]
